FAERS Safety Report 23540076 (Version 2)
Quarter: 2024Q1

REPORT INFORMATION
  Report Type: Report from Study
  Country: US (occurrence: US)
  Receive Date: 20240219
  Receipt Date: 20240327
  Transmission Date: 20240409
  Serious: Yes (Other)
  Sender: FDA-Public Use
  Company Number: US-ABBVIE-5640879

PATIENT
  Sex: Female
  Weight: 78.9 kg

DRUGS (27)
  1. RINVOQ [Suspect]
     Active Substance: UPADACITINIB
     Indication: Dermatitis atopic
     Route: 048
     Dates: start: 20230301
  2. RINVOQ [Suspect]
     Active Substance: UPADACITINIB
     Indication: Dermatitis atopic
     Route: 048
     Dates: start: 202302
  3. VITAMIN D [Concomitant]
     Active Substance: VITAMIN D NOS
     Indication: Product used for unknown indication
     Dosage: 5,000
  4. GABAPENTIN [Concomitant]
     Active Substance: GABAPENTIN
     Indication: Migraine prophylaxis
  5. CYMBALTA [Concomitant]
     Active Substance: DULOXETINE HYDROCHLORIDE
     Indication: Fibromyalgia
  6. TRIAMCINOLONE ACETONIDE [Concomitant]
     Active Substance: TRIAMCINOLONE ACETONIDE
     Indication: Psoriasis
     Dosage: .01%?APPLY 2X DAILY
  7. MEMANTINE [Concomitant]
     Active Substance: MEMANTINE
     Indication: Migraine prophylaxis
  8. LINZESS [Concomitant]
     Active Substance: LINACLOTIDE
     Indication: Irritable bowel syndrome
  9. MYRBETRIQ [Concomitant]
     Active Substance: MIRABEGRON
     Indication: Cystitis interstitial
  10. IBANDRONATE SODIUM [Concomitant]
     Active Substance: IBANDRONATE SODIUM
     Indication: Bone loss
  11. DEXILANT [Concomitant]
     Active Substance: DEXLANSOPRAZOLE
     Indication: Gastrooesophageal reflux disease
  12. CALCIUM [Concomitant]
     Active Substance: CALCIUM
     Indication: Product used for unknown indication
  13. SUMATRIPTAN [Concomitant]
     Active Substance: SUMATRIPTAN
     Indication: Migraine
     Dosage: 1 AS NEEDED/MAY REPEAT 1X
  14. MIRAPEX [Concomitant]
     Active Substance: PRAMIPEXOLE DIHYDROCHLORIDE
     Indication: Restless legs syndrome
     Dosage: NIGHT
  15. MIRAPEX [Concomitant]
     Active Substance: PRAMIPEXOLE DIHYDROCHLORIDE
     Indication: Restless legs syndrome
     Dosage: MORNING
  16. LAMICTAL [Concomitant]
     Active Substance: LAMOTRIGINE
     Indication: Autoimmune disorder
  17. B100 [Concomitant]
     Active Substance: CITRIC ACID MONOHYDRATE\SODIUM CHLORITE
     Indication: Product used for unknown indication
     Dosage: COMPLEX
  18. B100 [Concomitant]
     Active Substance: CITRIC ACID MONOHYDRATE\SODIUM CHLORITE
     Indication: Product used for unknown indication
     Dosage: COMPLEX
  19. HYOSCYAMINE [Concomitant]
     Active Substance: HYOSCYAMINE
     Indication: Bladder pain
     Dosage: 1-2 AS NEEDED
  20. URIBEL [Concomitant]
     Active Substance: HYOSCYAMINE SULFATE\METHENAMINE\METHYLENE BLUE\PHENYL SALICYLATE\SODIUM PHOSPHATE, MONOBASIC, MONOHY
     Indication: Bladder pain
     Dosage: 1 AS NEEDED
  21. UBRELVY [Concomitant]
     Active Substance: UBROGEPANT
     Indication: Migraine
     Dosage: 1 AS NEEDED
  22. EMGALITY [Concomitant]
     Active Substance: GALCANEZUMAB-GNLM
     Indication: Migraine prophylaxis
     Dosage: 1 SHOT MONTHLY
  23. DIETARY SUPPLEMENT [Concomitant]
     Active Substance: DIETARY SUPPLEMENT
     Indication: Product used for unknown indication
  24. IMVEXXY [Concomitant]
     Active Substance: ESTRADIOL
     Indication: Sjogren^s syndrome
     Dosage: 2-3X WEEKLY
  25. SEMAGLUTIDE [Concomitant]
     Active Substance: SEMAGLUTIDE
     Indication: Weight decreased
     Dosage: INJECT PEN
  26. FLEXERIL [Concomitant]
     Active Substance: CYCLOBENZAPRINE HYDROCHLORIDE
     Indication: Sleep disorder
  27. EVOXAC [Concomitant]
     Active Substance: CEVIMELINE HYDROCHLORIDE
     Indication: Sjogren^s syndrome
     Dosage: TIME INTERVAL: 0.33333333 DAYS

REACTIONS (5)
  - Hip fracture [Recovered/Resolved]
  - Stress fracture [Unknown]
  - Ligament rupture [Unknown]
  - Weight bearing difficulty [Unknown]
  - Arthralgia [Unknown]

NARRATIVE: CASE EVENT DATE: 20230101
